FAERS Safety Report 23945456 (Version 2)
Quarter: 2024Q2

REPORT INFORMATION
  Report Type: Spontaneous
  Country: US (occurrence: US)
  Receive Date: 20240606
  Receipt Date: 20240627
  Transmission Date: 20240716
  Serious: No
  Sender: FDA-Public Use
  Company Number: US-TORRENT-00013596

PATIENT
  Sex: Male

DRUGS (1)
  1. TIOPRONIN [Suspect]
     Active Substance: TIOPRONIN
     Indication: Cystinuria
     Dosage: 100 MG AND 300 MG 3 TIMES A DAY BUT HE TAKES IT TWICE A DAY
     Route: 065
     Dates: start: 20240524

REACTIONS (1)
  - Incorrect dose administered [Unknown]
